FAERS Safety Report 10765108 (Version 1)
Quarter: 2015Q1

REPORT INFORMATION
  Report Type: Spontaneous
  Country: US (occurrence: None)
  Receive Date: 20150204
  Receipt Date: 20150204
  Transmission Date: 20150721
  Serious: Yes (Life-Threatening)
  Sender: FDA-Public Use
  Company Number: None

PATIENT
  Age: 48 Year
  Sex: Male
  Weight: 94 kg

DRUGS (1)
  1. PROTAMINE SULFATE. [Suspect]
     Active Substance: PROTAMINE SULFATE
     Indication: PROCOAGULANT THERAPY
     Route: 042
     Dates: start: 20150202, end: 20150202

REACTIONS (6)
  - Urticaria [None]
  - Hypotension [None]
  - Respiratory disorder [None]
  - Anaphylactoid reaction [None]
  - Pruritus [None]
  - Atrial fibrillation [None]

NARRATIVE: CASE EVENT DATE: 20150202
